FAERS Safety Report 4758347-5 (Version None)
Quarter: 2005Q3

REPORT INFORMATION
  Report Type: 
  Country: None (occurrence: None)
  Receive Date: 20050826
  Receipt Date: 20050511
  Transmission Date: 20060218
  Serious: No
  Sender: FDA-Public Use
  Company Number: WAES 0505USA01483

PATIENT
  Sex: Female

DRUGS (2)
  1. ZETIA [Suspect]
     Dosage: PO;  1 TABLET/DAILY/PO
     Route: 048
     Dates: start: 20031203, end: 20040301
  2. ZETIA [Suspect]
     Dosage: PO;  1 TABLET/DAILY/PO
     Route: 048
     Dates: start: 20040510, end: 20041104

REACTIONS (6)
  - ARTHRALGIA [None]
  - BACK PAIN [None]
  - FATIGUE [None]
  - NAUSEA [None]
  - PAIN IN JAW [None]
  - TOOTHACHE [None]
